FAERS Safety Report 6794789-4 (Version None)
Quarter: 2010Q2

REPORT INFORMATION
  Report Type: 
  Country: None (occurrence: None)
  Receive Date: 20100625
  Receipt Date: 20100621
  Transmission Date: 20101027
  Serious: Yes (Other)
  Sender: FDA-Public Use
  Company Number: AU-BRISTOL-MYERS SQUIBB COMPANY-15137243

PATIENT
  Age: 79 Year
  Sex: Female

DRUGS (12)
  1. KARVEA [Suspect]
     Indication: HYPERTENSION
     Dosage: REDUCED TO 150MG ON 5MAY10
     Dates: start: 20090510, end: 20100505
  2. CLARITHROMYCIN [Interacting]
     Indication: PNEUMONIA
     Dates: start: 20100417, end: 20100430
  3. PRISTIQ [Concomitant]
     Dates: start: 20090901
  4. CARTIA XT [Concomitant]
     Dates: start: 20100311
  5. NEXIUM [Concomitant]
     Dates: start: 20100510
  6. DIAZEPAM [Concomitant]
     Dates: start: 20100110
  7. ARIMIDEX [Concomitant]
     Dates: start: 20090510
  8. SERETIDE [Concomitant]
     Dosage: 1 DF= 2 PUFF. SERETIDE 250/50
     Dates: start: 20090901
  9. AMPHOTERICIN LOZENGES [Concomitant]
     Dates: start: 20100417, end: 20100422
  10. AMOXICILLIN [Concomitant]
     Dosage: 1 CAP
     Dates: start: 20100409, end: 20100413
  11. ATENOLOL [Concomitant]
     Dates: start: 20090603
  12. LASIX [Concomitant]
     Dates: start: 20090603

REACTIONS (6)
  - BLOOD PRESSURE SYSTOLIC INCREASED [None]
  - DIZZINESS [None]
  - DRUG INTERACTION [None]
  - HYPOTENSION [None]
  - NO THERAPEUTIC RESPONSE [None]
  - PNEUMONIA [None]
